FAERS Safety Report 25533331 (Version 2)
Quarter: 2025Q3

REPORT INFORMATION
  Report Type: Report from Study
  Country: CA (occurrence: None)
  Receive Date: 20250709
  Receipt Date: 20250905
  Transmission Date: 20251021
  Serious: Yes (Hospitalization, Other)
  Sender: ORION
  Company Number: CA-PFIZER INC-202500135731

PATIENT
  Age: 75 Year
  Sex: Female

DRUGS (21)
  1. METHOTREXATE [Suspect]
     Active Substance: METHOTREXATE
     Indication: Rheumatoid arthritis
  2. FOLIC ACID [Suspect]
     Active Substance: FOLIC ACID
     Indication: Product used for unknown indication
  3. ORENCIA [Suspect]
     Active Substance: ABATACEPT
     Indication: Rheumatoid arthritis
  4. ORENCIA [Suspect]
     Active Substance: ABATACEPT
  5. ASPIRIN [Concomitant]
     Active Substance: ASPIRIN
  6. ATORVASTATIN [Concomitant]
     Active Substance: ATORVASTATIN
  7. CYCLOBENZAPRINE [Concomitant]
     Active Substance: CYCLOBENZAPRINE
  8. ELIQUIS [Concomitant]
     Active Substance: APIXABAN
  9. FUROSEMIDE [Concomitant]
     Active Substance: FUROSEMIDE
  10. LORATADINE [Concomitant]
     Active Substance: LORATADINE
  11. METOPROLOL [Concomitant]
     Active Substance: METOPROLOL
     Dosage: STRENGTH: 25 MG
  12. MONTELUKAST [Concomitant]
     Active Substance: MONTELUKAST
  13. PANTOPRAZOLE [Concomitant]
     Active Substance: PANTOPRAZOLE
  14. PERINDOPRIL ERBUMINE [Concomitant]
     Active Substance: PERINDOPRIL ERBUMINE
     Dosage: 8 MG: STRENGTH
  15. ALBUTEROL [Concomitant]
     Active Substance: ALBUTEROL
  16. SPIRONOLACTONE [Concomitant]
     Active Substance: SPIRONOLACTONE
  17. SYMBICORT [Concomitant]
     Active Substance: BUDESONIDE\FORMOTEROL FUMARATE DIHYDRATE
  18. TYLENOL [Concomitant]
     Active Substance: ACETAMINOPHEN
  19. CHOLECALCIFEROL [Concomitant]
     Active Substance: CHOLECALCIFEROL
     Dosage: STRENGTH: 1000 IU(INTERNATIONAL UNIT)
  20. ZOPICLONE [Concomitant]
     Active Substance: ZOPICLONE
  21. ADULT MULTIVITAMIN [Concomitant]

REACTIONS (7)
  - Immunodeficiency [Unknown]
  - Sepsis [Unknown]
  - Cardiac disorder [Unknown]
  - Organ failure [Unknown]
  - Sinusitis [Unknown]
  - Bronchitis [Unknown]
  - Inappropriate schedule of product administration [Unknown]
